FAERS Safety Report 18710088 (Version 3)
Quarter: 2021Q2

REPORT INFORMATION
  Report Type: Report from Study
  Country: None (occurrence: CA)
  Receive Date: 20210106
  Receipt Date: 20210512
  Transmission Date: 20210717
  Serious: Yes (Death, Hospitalization, Other)
  Sender: FDA-Public Use
  Company Number: CA-ABBVIE-21K-028-3717018-00

PATIENT
  Age: 73 Year
  Sex: Male

DRUGS (1)
  1. LUPRON DEPOT [Suspect]
     Active Substance: LEUPROLIDE ACETATE
     Indication: PROSTATE CANCER
     Route: 030
     Dates: start: 20200903

REACTIONS (7)
  - Extradural abscess [Not Recovered/Not Resolved]
  - Surgery [Unknown]
  - Depressed level of consciousness [Unknown]
  - Post procedural complication [Unknown]
  - Mobility decreased [Unknown]
  - Vital functions abnormal [Unknown]
  - Death [Fatal]

NARRATIVE: CASE EVENT DATE: 20201229
